FAERS Safety Report 7431182-5 (Version None)
Quarter: 2011Q2

REPORT INFORMATION
  Report Type: 
  Country: None (occurrence: None)
  Receive Date: 20110421
  Receipt Date: 20110419
  Transmission Date: 20111010
  Serious: Yes (Hospitalization)
  Sender: FDA-Public Use
  Company Number: US-B.I. PHARMACEUTICALS,INC./RIDGEFIELD-2011-BP-05892BP

PATIENT
  Age: 97 Year
  Sex: Female

DRUGS (7)
  1. UNIVASC [Concomitant]
     Dosage: 15 MG
  2. ZOLOFT [Concomitant]
     Dosage: 50 MG
  3. AMIODARONE [Concomitant]
     Dosage: 400 MG
  4. PRADAXA [Suspect]
     Indication: THROMBOSIS PROPHYLAXIS
     Dosage: 150 MG
     Route: 048
     Dates: start: 20110223, end: 20110226
  5. LEVOTHYROXINE SODIUM [Concomitant]
     Dosage: 0.1 MG
  6. CRESTOR [Concomitant]
     Dosage: 10 MG
  7. PRADAXA [Suspect]
     Indication: ATRIAL FIBRILLATION
     Dosage: 300 MG
     Route: 048
     Dates: start: 20110222

REACTIONS (4)
  - RECTAL HAEMORRHAGE [None]
  - MESENTERITIS [None]
  - HAEMATOMA [None]
  - ABDOMINAL PAIN LOWER [None]
